FAERS Safety Report 6092291-9 (Version None)
Quarter: 2009Q1

REPORT INFORMATION
  Report Type: 
  Country: None (occurrence: None)
  Receive Date: 20090225
  Receipt Date: 20090220
  Transmission Date: 20090719
  Serious: Yes (Other)
  Sender: FDA-Public Use
  Company Number: B0558440A

PATIENT
  Age: 12 Year
  Sex: Female

DRUGS (7)
  1. RELENZA [Suspect]
     Indication: DRUG USE FOR UNKNOWN INDICATION
     Dosage: 10MG TWICE PER DAY
     Route: 055
     Dates: start: 20030217
  2. CALONAL [Concomitant]
     Dosage: 1200MG PER DAY
     Route: 048
     Dates: start: 20030217
  3. SISAAL [Concomitant]
     Route: 048
     Dates: start: 20030217
  4. MARZULENE-S [Concomitant]
     Route: 048
     Dates: start: 20030217
  5. PERORIC [Concomitant]
     Route: 048
     Dates: start: 20030217
  6. THIATON [Concomitant]
     Route: 048
     Dates: start: 20030217
  7. CEFACLOR [Concomitant]
     Indication: PHARYNGITIS
     Route: 048
     Dates: start: 20030217

REACTIONS (6)
  - ALANINE AMINOTRANSFERASE INCREASED [None]
  - ASPARTATE AMINOTRANSFERASE INCREASED [None]
  - BLOOD CREATINE PHOSPHOKINASE INCREASED [None]
  - BLOOD LACTATE DEHYDROGENASE INCREASED [None]
  - GAIT DISTURBANCE [None]
  - MYALGIA [None]
